FAERS Safety Report 25223327 (Version 2)
Quarter: 2025Q2

REPORT INFORMATION
  Report Type: Spontaneous
  Country: JP (occurrence: JP)
  Receive Date: 20250422
  Receipt Date: 20250428
  Transmission Date: 20250717
  Serious: Yes (Other)
  Sender: GALDERMA
  Company Number: JP-GALDERMA-JP2025006039

PATIENT

DRUGS (4)
  1. NEMOLIZUMAB [Suspect]
     Active Substance: NEMOLIZUMAB
     Indication: Dermatitis atopic
     Route: 058
     Dates: start: 20250304, end: 20250304
  2. NEMOLIZUMAB [Suspect]
     Active Substance: NEMOLIZUMAB
     Route: 058
     Dates: start: 20250401, end: 20250401
  3. DELGOCITINIB [Concomitant]
     Active Substance: DELGOCITINIB
     Indication: Product used for unknown indication
     Route: 061
  4. UFENAMATE [Concomitant]
     Active Substance: UFENAMATE
     Indication: Product used for unknown indication
     Route: 061

REACTIONS (3)
  - Uveitis [Not Recovered/Not Resolved]
  - Erythema [Not Recovered/Not Resolved]
  - Dermatitis atopic [Not Recovered/Not Resolved]

NARRATIVE: CASE EVENT DATE: 20250412
